FAERS Safety Report 6300455-1 (Version None)
Quarter: 2009Q3

REPORT INFORMATION
  Report Type: 
  Country: None (occurrence: None)
  Receive Date: 20090806
  Receipt Date: 20081218
  Transmission Date: 20100115
  Serious: No
  Sender: FDA-Public Use
  Company Number: US-ABBOTT-08P-163-0493713-00

PATIENT
  Sex: Female
  Weight: 69.916 kg

DRUGS (3)
  1. DEPAKOTE ER [Suspect]
     Indication: EPILEPSY
     Dosage: 3 PILLS IN MORNING AND 2 AT NIGHT
  2. CAPRA [Concomitant]
     Indication: DRUG USE FOR UNKNOWN INDICATION
  3. DIAMOX [Concomitant]
     Indication: DRUG USE FOR UNKNOWN INDICATION

REACTIONS (1)
  - MEDICATION RESIDUE [None]
